FAERS Safety Report 6530918-5 (Version None)
Quarter: 2010Q1

REPORT INFORMATION
  Report Type: 
  Country: None (occurrence: None)
  Receive Date: 20100108
  Receipt Date: 20090602
  Transmission Date: 20100710
  Serious: No
  Sender: FDA-Public Use
  Company Number: A0788030A

PATIENT
  Age: 51 Year
  Sex: Male

DRUGS (1)
  1. LOVAZA [Suspect]
     Dosage: 1CAPL PER DAY
     Route: 048

REACTIONS (3)
  - EYE IRRITATION [None]
  - HEADACHE [None]
  - LACRIMATION INCREASED [None]
